FAERS Safety Report 8259943-3 (Version None)
Quarter: 2012Q1

REPORT INFORMATION
  Report Type: 
  Country: None (occurrence: None)
  Receive Date: 20120327
  Receipt Date: 20080721
  Transmission Date: 20120608
  Serious: Yes (Other)
  Sender: FDA-Public Use
  Company Number: PHEH2008US06523

PATIENT
  Age: 88 Year
  Sex: Male

DRUGS (4)
  1. GLEEVEC [Suspect]
     Indication: ACUTE LYMPHOCYTIC LEUKAEMIA
     Dosage: 400 MG, QD MON TO SAT, ORAL
     Route: 048
     Dates: start: 20070601, end: 20080601
  2. DIGOXIN [Concomitant]
  3. PREDNISONE TAB [Concomitant]
  4. ALLOPURINOL [Concomitant]

REACTIONS (3)
  - NEOPLASM MALIGNANT [None]
  - DEHYDRATION [None]
  - RENAL FAILURE ACUTE [None]
